FAERS Safety Report 9819432 (Version 2)
Quarter: 2014Q1

REPORT INFORMATION
  Report Type: Spontaneous
  Country: DE (occurrence: DE)
  Receive Date: 20140115
  Receipt Date: 20140115
  Transmission Date: 20141002
  Serious: Yes (Other)
  Sender: FDA-Public Use
  Company Number: DE-BRISTOL-MYERS SQUIBB COMPANY-18588004

PATIENT
  Age: 65 Year
  Sex: Female

DRUGS (4)
  1. BYDUREON 2MG PEN DISPOSABLE [Suspect]
     Indication: TYPE 2 DIABETES MELLITUS
     Route: 058
     Dates: start: 201203
  2. LISINOPRIL [Concomitant]
  3. METOHEXAL [Concomitant]
  4. CORINFAR [Concomitant]

REACTIONS (2)
  - Blood pressure increased [Not Recovered/Not Resolved]
  - Weight increased [Not Recovered/Not Resolved]
